FAERS Safety Report 16039954 (Version 1)
Quarter: 2019Q1

REPORT INFORMATION
  Report Type: Spontaneous
  Country: US (occurrence: JP)
  Receive Date: 20190306
  Receipt Date: 20190306
  Transmission Date: 20190418
  Serious: Yes (Hospitalization, Other)
  Sender: FDA-Public Use
  Company Number: US-PFIZER INC-2019095215

PATIENT
  Age: 30 Year
  Sex: Male

DRUGS (5)
  1. INFLIXIMAB [Suspect]
     Active Substance: INFLIXIMAB
     Indication: CROHN^S DISEASE
     Dosage: UNK
     Dates: start: 2011
  2. MESALAMINE. [Suspect]
     Active Substance: MESALAMINE
     Indication: CROHN^S DISEASE
     Dosage: UNK
     Route: 048
  3. INFLIXIMAB [Suspect]
     Active Substance: INFLIXIMAB
     Indication: CROHN^S DISEASE
  4. MESALAMINE. [Suspect]
     Active Substance: MESALAMINE
     Dosage: UNK
     Dates: start: 2011
  5. ADALIMUMAB [Suspect]
     Active Substance: ADALIMUMAB
     Indication: PROPHYLAXIS

REACTIONS (5)
  - Abdominal abscess [Recovering/Resolving]
  - Condition aggravated [Unknown]
  - Intestinal perforation [Recovering/Resolving]
  - Ileal stenosis [Unknown]
  - Therapy non-responder [Unknown]

NARRATIVE: CASE EVENT DATE: 201510
